FAERS Safety Report 4114812 (Version 7)
Quarter: 2017Q2

REPORT INFORMATION
  Report Type: Report from Study
  Country: FR (occurrence: FR)
  Receive Date: 20040319
  Receipt Date: 20170519
  Transmission Date: 20170830
  Serious: Yes (Death, Hospitalization)
  Sender: FDA-Public Use
  Company Number: FR-JNJFOC-20040301753

PATIENT
  Age: 57 Year
  Sex: Male
  Weight: 73 kg

DRUGS (10)
  1. IMMUNOSUPPRESSANT [Concomitant]
     Active Substance: UNSPECIFIED INGREDIENT
  2. ANTALVIC [Concomitant]
     Active Substance: PROPOXYPHENE HYDROCHLORIDE
     Indication: PAIN
     Route: 048
     Dates: start: 20040210
  3. TETRAZEPAM [Concomitant]
     Active Substance: TETRAZEPAM
     Route: 048
     Dates: start: 200304
  4. MEDIATOR [Concomitant]
     Active Substance: BENFLUOREX
     Route: 048
     Dates: start: 20030905
  5. THIOCOLCHICOZIDE [Concomitant]
     Route: 048
     Dates: start: 200304
  6. OMEPRAZOLE. [Concomitant]
     Active Substance: OMEPRAZOLE
     Route: 048
     Dates: start: 200304
  7. REMICADE [Suspect]
     Active Substance: INFLIXIMAB
     Indication: ANKYLOSING SPONDYLITIS
     Route: 042
     Dates: start: 20031010
  8. REMICADE [Suspect]
     Active Substance: INFLIXIMAB
     Indication: ANKYLOSING SPONDYLITIS
     Route: 042
     Dates: end: 20040127
  9. PROPOFAN [Concomitant]
     Active Substance: ACETAMINOPHEN\CAFFEINE\PROPOXYPHENE
     Indication: PAIN
     Route: 048
     Dates: start: 20040228
  10. VOLTARENE [Concomitant]
     Active Substance: DICLOFENAC SODIUM
     Indication: PAIN
     Route: 048
     Dates: start: 20040120, end: 20040301

REACTIONS (4)
  - Muscle spasms [Not Recovered/Not Resolved]
  - Amyotrophic lateral sclerosis [Fatal]
  - Emphysema [Unknown]
  - Ankylosing spondylitis [Unknown]

NARRATIVE: CASE EVENT DATE: 20040301
